FAERS Safety Report 8877728 (Version 1)
Quarter: 2012Q4

REPORT INFORMATION
  Report Type: Spontaneous
  Country: JP (occurrence: None)
  Receive Date: 20121026
  Receipt Date: 20121026
  Transmission Date: 20130627
  Serious: Yes (Life-Threatening)
  Sender: FDA-Public Use
  Company Number: TCI2012A05631

PATIENT
  Age: 77 Year
  Sex: Male

DRUGS (9)
  1. ACTOS [Suspect]
     Indication: DIABETES MELLITUS
     Route: 048
     Dates: start: 20070111, end: 20110708
  2. NORVASC (AMLODIPINE BESILATE) [Concomitant]
  3. GLUCOBAY (ACARBOSE) [Concomitant]
  4. DIOVAN (VALSARTAN) [Concomitant]
  5. CRESTOR (ROSUVASTATIN CALCIUM) [Concomitant]
  6. EXFORGE (AMLODIPINE BESILATE, VALSARTAN) [Concomitant]
  7. MICAMLO (AMLODIPINE BESILATE, TELMISARTAN) [Concomitant]
  8. BIO-THREE [Concomitant]
  9. MAGMITT (MAGNESIUM OXIDE) [Concomitant]

REACTIONS (2)
  - Bladder neoplasm [None]
  - Lipids abnormal [None]
